FAERS Safety Report 7280189-X (Version None)
Quarter: 2011Q1

REPORT INFORMATION
  Report Type: 
  Country: None (occurrence: None)
  Receive Date: 20110208
  Receipt Date: 20110127
  Transmission Date: 20110831
  Serious: Yes (Hospitalization, Other)
  Sender: FDA-Public Use
  Company Number: DE-SANOFI-AVENTIS-2010SA063173

PATIENT
  Age: 54 Year
  Sex: Male
  Weight: 82 kg

DRUGS (5)
  1. POTASSIUM IODIDE [Concomitant]
     Dosage: 1X1
     Route: 048
  2. ATACAND [Concomitant]
     Dosage: 1/2
     Route: 048
     Dates: start: 20100615, end: 20100625
  3. ASPIRIN [Concomitant]
     Indication: ATRIAL FIBRILLATION
     Dosage: 1X1
     Route: 048
  4. BISOHEXAL [Concomitant]
     Indication: ATRIAL FIBRILLATION
     Dosage: DOSE: 1/2
     Route: 048
     Dates: start: 20091221
  5. MULTAQ [Suspect]
     Indication: ATRIAL FIBRILLATION
     Dosage: 2X1
     Route: 048
     Dates: start: 20100623, end: 20100709

REACTIONS (7)
  - NAUSEA [None]
  - GENERAL PHYSICAL HEALTH DETERIORATION [None]
  - CHROMATURIA [None]
  - BLOOD BILIRUBIN INCREASED [None]
  - HEPATITIS TOXIC [None]
  - PYREXIA [None]
  - ATRIAL FIBRILLATION [None]
